FAERS Safety Report 20205773 (Version 2)
Quarter: 2022Q1

REPORT INFORMATION
  Report Type: Spontaneous
  Country: US (occurrence: US)
  Receive Date: 20211220
  Receipt Date: 20220110
  Transmission Date: 20220424
  Serious: Yes (Other)
  Sender: FDA-Public Use
  Company Number: US-ORGANON-O2112USA001281

PATIENT
  Sex: Female

DRUGS (4)
  1. COZAAR [Suspect]
     Active Substance: LOSARTAN POTASSIUM
     Dosage: 50 MILLIGRAM, BID
     Route: 048
  2. VYNDAMAX [Suspect]
     Active Substance: TAFAMIDIS
     Dosage: 61 MILLIGRAM
     Dates: start: 20210511
  3. IMDUR [Suspect]
     Active Substance: ISOSORBIDE MONONITRATE
     Dosage: UNK
  4. FLONASE ALLERGY RELIEF [Suspect]
     Active Substance: FLUTICASONE PROPIONATE
     Dosage: UNK

REACTIONS (11)
  - Cardiac amyloidosis [Unknown]
  - Productive cough [Unknown]
  - Rhinorrhoea [Unknown]
  - Sleep disorder [Unknown]
  - Dyspnoea [Unknown]
  - Chest pain [Unknown]
  - Chest discomfort [Unknown]
  - Fatigue [Unknown]
  - Hypotension [Unknown]
  - Cough [Unknown]
  - Dizziness [Unknown]
